FAERS Safety Report 8388172-8 (Version None)
Quarter: 2012Q2

REPORT INFORMATION
  Report Type: 
  Country: None (occurrence: None)
  Receive Date: 20120525
  Receipt Date: 20120514
  Transmission Date: 20120825
  Serious: Yes (Other)
  Sender: FDA-Public Use
  Company Number: US-JNJFOC-20120410319

PATIENT
  Sex: Male
  Weight: 113.4 kg

DRUGS (3)
  1. METHOTREXATE [Concomitant]
     Dosage: 6 TABLETS PER WEEK
     Route: 048
  2. STELARA [Suspect]
     Indication: PSORIASIS
     Dosage: ABOUT A YEAR AGO
     Route: 058
  3. METHOTREXATE [Concomitant]
     Dosage: 8 TABLETS PER WEEK
     Route: 048

REACTIONS (9)
  - FOOT FRACTURE [None]
  - JOINT SWELLING [None]
  - PSORIATIC ARTHROPATHY [None]
  - ARTHROPATHY [None]
  - PERONEAL MUSCULAR ATROPHY [None]
  - CENTRAL NERVOUS SYSTEM LESION [None]
  - ARTHRALGIA [None]
  - PSORIASIS [None]
  - MUSCULAR DYSTROPHY [None]
